FAERS Safety Report 6640562-7 (Version None)
Quarter: 2010Q1

REPORT INFORMATION
  Report Type: 
  Country: None (occurrence: None)
  Receive Date: 20100318
  Receipt Date: 20100311
  Transmission Date: 20100710
  Serious: Yes (Hospitalization)
  Sender: FDA-Public Use
  Company Number: AU-ELI_LILLY_AND_COMPANY-AU201003003575

PATIENT
  Sex: Female
  Weight: 58 kg

DRUGS (11)
  1. GEMCITABINE HCL [Suspect]
     Indication: NON-SMALL CELL LUNG CANCER
     Dosage: 1000 MG/M2, ON DAYS 1 + 8 EVERY 3 WEEKS
     Route: 042
     Dates: start: 20100218
  2. CETUXIMAB [Suspect]
     Indication: NON-SMALL CELL LUNG CANCER
     Dosage: 250 MG/M2, ONCE WEEKLY
     Route: 042
     Dates: start: 20100218
  3. CARBOPLATIN [Suspect]
     Indication: NON-SMALL CELL LUNG CANCER
     Dosage: AUC 5, DAY 1 EVERY 3 WEEKS
     Route: 042
     Dates: start: 20100218
  4. FENTANYL [Concomitant]
     Indication: BONE PAIN
     Dosage: 12 UG, EVERY HOUR
     Route: 062
     Dates: start: 20100204
  5. PARACETAMOL [Concomitant]
     Indication: BONE PAIN
     Dosage: 1 G, AS NEEDED
     Route: 048
  6. LEVLEN ED [Concomitant]
     Indication: CONTRACEPTION
     Dosage: 1 D/F, DAILY (1/D)
     Route: 048
  7. DOXYCYCLINE [Concomitant]
     Indication: RASH
     Dosage: 100 MG, UNK
     Route: 048
     Dates: start: 20100225
  8. CEPHALEXIN [Concomitant]
     Indication: RASH
     Dosage: 500 MG, UNK
     Route: 048
     Dates: start: 20100225
  9. MAXOLON [Concomitant]
     Indication: NAUSEA
     Dosage: 10 MG, UNK
     Route: 048
     Dates: start: 20100223
  10. BUSCOPAN [Concomitant]
     Indication: MUSCLE SPASMS
     Dosage: 10 MG, UNK
     Route: 048
     Dates: start: 20100225
  11. PREDNISONE [Concomitant]
     Indication: RASH
     Dosage: 40 MG, UNK
     Route: 048
     Dates: start: 20100304

REACTIONS (3)
  - HAEMOPTYSIS [None]
  - NEUTROPENIA [None]
  - THROMBOCYTOPENIA [None]
